FAERS Safety Report 4717874-7 (Version None)
Quarter: 2005Q3

REPORT INFORMATION
  Report Type: 
  Country: None (occurrence: None)
  Receive Date: 20050715
  Receipt Date: 20050331
  Transmission Date: 20060218
  Serious: Yes (Hospitalization)
  Sender: FDA-Public Use
  Company Number: 2005FR-00098

PATIENT
  Sex: Male

DRUGS (4)
  1. LORAZEPAM [Suspect]
  2. ABILIFY [Concomitant]
  3. ZOPICLONE [Concomitant]
  4. CHLORPROMAZINE HCL [Concomitant]

REACTIONS (2)
  - OVERDOSE [None]
  - SUICIDE ATTEMPT [None]
